FAERS Safety Report 9486843 (Version 2)
Quarter: 2013Q3

REPORT INFORMATION
  Report Type: Spontaneous
  Country: US (occurrence: US)
  Receive Date: 20130829
  Receipt Date: 20130916
  Transmission Date: 20140515
  Serious: No
  Sender: FDA-Public Use
  Company Number: US-BAYER-2013-101688

PATIENT
  Age: 3 Year
  Sex: Male

DRUGS (1)
  1. CIPRO 5 % ORAL SUSPENSION [Suspect]
     Dosage: UNK

REACTIONS (2)
  - Vomiting [None]
  - Nausea [None]
